FAERS Safety Report 4392372-1 (Version None)
Quarter: 2004Q3

REPORT INFORMATION
  Report Type: 
  Country: None (occurrence: None)
  Receive Date: 20040702
  Receipt Date: 20040309
  Transmission Date: 20050211
  Serious: Yes (Other)
  Sender: FDA-Public Use
  Company Number: 2004UW04465

PATIENT
  Age: 80 Year
  Sex: Female
  Weight: 43.0917 kg

DRUGS (5)
  1. CRESTOR [Suspect]
     Indication: BLOOD CHOLESTEROL INCREASED
     Dosage: 10 MG PO
     Route: 048
     Dates: start: 20040201
  2. PROTONIX [Concomitant]
  3. EVISTA [Concomitant]
  4. COZAAR [Concomitant]
  5. ATENOLOL [Concomitant]

REACTIONS (2)
  - CHEST DISCOMFORT [None]
  - TENDERNESS [None]
